FAERS Safety Report 7389254-X (Version None)
Quarter: 2011Q2

REPORT INFORMATION
  Report Type: 
  Country: None (occurrence: None)
  Receive Date: 20110401
  Receipt Date: 20110324
  Transmission Date: 20111010
  Serious: Yes (Other)
  Sender: FDA-Public Use
  Company Number: HR-BAYER-2011-025849

PATIENT
  Age: 65 Year
  Sex: Female

DRUGS (4)
  1. ASPIRIN [Suspect]
     Indication: STENT PLACEMENT
     Dosage: UNK
     Route: 048
     Dates: start: 20091001
  2. TRITACE [Concomitant]
     Indication: HYPERTENSION
     Dosage: 5 MG/D, UNK
     Route: 048
     Dates: start: 20091001
  3. CLOPIDOGREL [Interacting]
     Indication: STENT PLACEMENT
     Dosage: 75 MG/D, UNK
     Route: 048
     Dates: start: 20091001
  4. SORTIS [Concomitant]
     Indication: HYPERCHOLESTEROLAEMIA
     Dosage: 20 MG/D, UNK
     Route: 048
     Dates: start: 20091001

REACTIONS (1)
  - HAEMATOMA [None]
